FAERS Safety Report 11588236 (Version 1)
Quarter: 2015Q4

REPORT INFORMATION
  Report Type: Spontaneous
  Country: US (occurrence: None)
  Receive Date: 20151001
  Receipt Date: 20151001
  Transmission Date: 20160304
  Serious: Yes (Other)
  Sender: FDA-Public Use
  Company Number: None

PATIENT
  Age: 53 Year
  Sex: Female
  Weight: 52.16 kg

DRUGS (4)
  1. BISACODYL 5 MG [Suspect]
     Active Substance: BISACODYL
     Indication: CONSTIPATION
     Route: 048
     Dates: start: 20150915
  2. UNSPECIFIED HIGH BLOOD PRESSURE MEDICATIONS [Concomitant]
     Active Substance: UNSPECIFIED INGREDIENT
  3. HIGH CHOLESTEROL MEDICATIONS [Concomitant]
  4. MOOD REGULATION MEDICATION [Concomitant]

REACTIONS (6)
  - Vomiting [None]
  - Throat tightness [None]
  - Abasia [None]
  - Hyperhidrosis [None]
  - Diarrhoea [None]
  - Muscular weakness [None]

NARRATIVE: CASE EVENT DATE: 20150915
